FAERS Safety Report 6428373-9 (Version None)
Quarter: 2009Q4

REPORT INFORMATION
  Report Type: 
  Country: None (occurrence: None)
  Receive Date: 20091102
  Receipt Date: 20091022
  Transmission Date: 20100525
  Serious: Yes (Hospitalization)
  Sender: FDA-Public Use
  Company Number: WAES 0907USA00321

PATIENT
  Age: 61 Year
  Sex: Female

DRUGS (8)
  1. JANUVIA [Suspect]
     Indication: TYPE 2 DIABETES MELLITUS
     Dosage: 100 MG/DAILY PO
     Route: 048
     Dates: start: 20090311, end: 20090603
  2. TAB PLACEBO (UNSPECIFIED) [Suspect]
     Indication: TYPE 2 DIABETES MELLITUS
     Dosage: PO ; PO
     Route: 048
     Dates: start: 20090225, end: 20090310
  3. TAB PLACEBO (UNSPECIFIED) [Suspect]
     Indication: TYPE 2 DIABETES MELLITUS
     Dosage: PO ; PO
     Route: 048
     Dates: start: 20090311, end: 20090603
  4. PENTOXIFYLLINE [Suspect]
     Indication: DIZZINESS
     Dosage: 400 MG/DAILY PO
     Route: 048
     Dates: start: 20090310, end: 20090610
  5. TAB AMOXICILLIN/CLAVULANATE POTASSIUM [Suspect]
     Indication: SINUSITIS
     Dosage: 1 GM/BID PO
     Route: 048
     Dates: start: 20090610, end: 20090624
  6. ZOCOR [Concomitant]
  7. BETAHISTINE HYDROCHLORIDE [Concomitant]
  8. METFORMIN HCL [Concomitant]

REACTIONS (14)
  - BLOOD CALCIUM DECREASED [None]
  - BLOOD CREATININE DECREASED [None]
  - BLOOD CREATININE INCREASED [None]
  - BLOOD FIBRINOGEN INCREASED [None]
  - BLOOD PH INCREASED [None]
  - HAEMOGLOBIN DECREASED [None]
  - INTERNATIONAL NORMALISED RATIO DECREASED [None]
  - MEAN PLATELET VOLUME INCREASED [None]
  - PROTHROMBIN LEVEL INCREASED [None]
  - PROTHROMBIN TIME SHORTENED [None]
  - RED BLOOD CELL COUNT DECREASED [None]
  - RED BLOOD CELLS URINE POSITIVE [None]
  - SINUSITIS [None]
  - THROMBOCYTOPENIA [None]
